FAERS Safety Report 8078226-8 (Version None)
Quarter: 2012Q1

REPORT INFORMATION
  Report Type: 
  Country: None (occurrence: None)
  Receive Date: 20120127
  Receipt Date: 20110303
  Transmission Date: 20120608
  Serious: No
  Sender: FDA-Public Use
  Company Number: US-ABBOTT-09P-163-0569687-00

PATIENT
  Sex: Female

DRUGS (22)
  1. ASACOL [Concomitant]
     Indication: CROHN'S DISEASE
  2. PHENERGAN [Concomitant]
     Indication: NAUSEA
  3. ULTRAM [Concomitant]
     Indication: PAIN
  4. BECANASE AQ [Concomitant]
     Indication: SEASONAL ALLERGY
  5. HUMIRA [Suspect]
     Indication: ANKYLOSING SPONDYLITIS
     Route: 058
     Dates: start: 20090423
  6. HUMIRA [Suspect]
     Indication: CROHN'S DISEASE
  7. EPIPEN [Concomitant]
     Indication: ANAPHYLACTIC REACTION
  8. ACETAMINOPHEN [Concomitant]
     Indication: PAIN
  9. SULFACETAMIDE [Concomitant]
     Indication: EYE INFECTION
  10. CARAFATE [Concomitant]
     Indication: CROHN'S DISEASE
  11. NIFUREX [Concomitant]
     Indication: ANAEMIA
  12. LASIX [Concomitant]
     Indication: OEDEMA PERIPHERAL
  13. COZAAR [Concomitant]
     Indication: HYPERTENSION
  14. FLINSTONES VITAMIN [Concomitant]
     Indication: VITAMIN SUPPLEMENTATION
  15. CARAFATE [Concomitant]
     Indication: POSTOPERATIVE CARE
  16. NEXIUM [Concomitant]
     Indication: GASTROOESOPHAGEAL REFLUX DISEASE
  17. VITAMIN D [Concomitant]
     Indication: VITAMIN D DEFICIENCY
  18. ZYRTEC [Concomitant]
     Indication: SEASONAL ALLERGY
  19. LASIX [Concomitant]
     Indication: JOINT SWELLING
  20. VITAMIN E [Concomitant]
     Indication: HEPATIC STEATOSIS
  21. SYNTHROID [Concomitant]
     Indication: HYPOTHYROIDISM
  22. MIRAPEX [Concomitant]
     Indication: RESTLESS LEGS SYNDROME

REACTIONS (6)
  - HEADACHE [None]
  - PAIN [None]
  - THROAT IRRITATION [None]
  - ORAL DISCOMFORT [None]
  - DYSPEPSIA [None]
  - DRUG INEFFECTIVE [None]
